FAERS Safety Report 10058006 (Version 1)
Quarter: 2014Q2

REPORT INFORMATION
  Report Type: Spontaneous
  Country: US (occurrence: None)
  Receive Date: 20140403
  Receipt Date: 20140403
  Transmission Date: 20141212
  Serious: Yes (Other)
  Sender: FDA-Public Use
  Company Number: None

PATIENT
  Age: 71 Year
  Sex: Male
  Weight: 84.82 kg

DRUGS (10)
  1. CEFDINIR [Suspect]
     Indication: LUNG INFECTION
     Dosage: 2 PILLS AT ONCE FOR TEN DAYS, ONCE IN MORNING, MOUTH
     Route: 048
     Dates: start: 20140301
  2. METOPROLOL [Concomitant]
  3. LISINOPRIL [Concomitant]
  4. DIAZEPAM [Concomitant]
  5. WARFARIN [Concomitant]
  6. TESTOSTERONE [Concomitant]
  7. V-12 [Concomitant]
  8. D3 - CALCIUM [Concomitant]
  9. MAGNESIUM [Concomitant]
  10. ZINC [Concomitant]

REACTIONS (8)
  - Abdominal pain [None]
  - Diarrhoea [None]
  - Proctalgia [None]
  - Chromaturia [None]
  - Nausea [None]
  - Decreased appetite [None]
  - Chills [None]
  - Pyrexia [None]
